FAERS Safety Report 8094189-3 (Version None)
Quarter: 2012Q1

REPORT INFORMATION
  Report Type: 
  Country: None (occurrence: None)
  Receive Date: 20120130
  Receipt Date: 20120130
  Transmission Date: 20120608
  Serious: No
  Sender: FDA-Public Use
  Company Number: None

PATIENT
  Age: 12 Year
  Sex: Male
  Weight: 97.522 kg

DRUGS (1)
  1. PREDNISONE [Suspect]

REACTIONS (2)
  - MALE SEXUAL DYSFUNCTION [None]
  - PRODUCT QUALITY ISSUE [None]
